FAERS Safety Report 15801707 (Version 5)
Quarter: 2020Q3

REPORT INFORMATION
  Report Type: Spontaneous
  Country: US (occurrence: US)
  Receive Date: 20190109
  Receipt Date: 20200917
  Transmission Date: 20201102
  Serious: No
  Sender: FDA-Public Use
  Company Number: US-PFIZER INC-2019011616

PATIENT
  Age: 61 Year
  Sex: Male

DRUGS (4)
  1. REVATIO [Suspect]
     Active Substance: SILDENAFIL CITRATE
     Indication: CARDIAC DISORDER
     Dosage: 20 MG, 3X/DAY
     Route: 048
  2. REVATIO [Suspect]
     Active Substance: SILDENAFIL CITRATE
     Indication: PULMONARY HYPERTENSION
     Dosage: 2 DF, DAILY (2 PILLS A DAY INSTEAD OF 3 SHORTLY)
     Route: 048
     Dates: start: 202001
  3. ADCIRCA [Concomitant]
     Active Substance: TADALAFIL
     Dosage: UNK
  4. REVATIO [Suspect]
     Active Substance: SILDENAFIL CITRATE
     Indication: PULMONARY ARTERIAL HYPERTENSION

REACTIONS (2)
  - Intentional product use issue [Unknown]
  - Drug ineffective [Unknown]
